FAERS Safety Report 7753689-3 (Version None)
Quarter: 2011Q3

REPORT INFORMATION
  Report Type: 
  Country: None (occurrence: None)
  Receive Date: 20110915
  Receipt Date: 20110908
  Transmission Date: 20111222
  Serious: Yes (Hospitalization, Other)
  Sender: FDA-Public Use
  Company Number: DE-PFIZER INC-2011200478

PATIENT
  Age: 34 Year
  Sex: Female
  Weight: 65 kg

DRUGS (1)
  1. SYNAREL [Suspect]
     Indication: IN VITRO FERTILISATION
     Dosage: 1 DF, 2X/DAY
     Route: 045
     Dates: start: 20110425, end: 20110501

REACTIONS (3)
  - DERMATITIS ALLERGIC [None]
  - ARTHROPATHY [None]
  - HYPERSENSITIVITY [None]
